FAERS Safety Report 6099882-X (Version None)
Quarter: 2009Q1

REPORT INFORMATION
  Report Type: 
  Country: None (occurrence: None)
  Receive Date: 20090226
  Receipt Date: 20090213
  Transmission Date: 20090719
  Serious: Yes (Death, Other)
  Sender: FDA-Public Use
  Company Number: 2009000430

PATIENT
  Sex: Female

DRUGS (3)
  1. TARCEVA [Suspect]
     Dosage: (150 MG MG, QD), ORAL
     Route: 048
     Dates: start: 20090106
  2. CISPLATIN [Concomitant]
  3. GEMCITABINE [Concomitant]

REACTIONS (2)
  - RASH GENERALISED [None]
  - SEPSIS [None]
